FAERS Safety Report 20883743 (Version 1)
Quarter: 2022Q2

REPORT INFORMATION
  Report Type: Spontaneous
  Country: US (occurrence: None)
  Receive Date: 20220526
  Receipt Date: 20220526
  Transmission Date: 20220721
  Serious: Yes (Disabling)
  Sender: FDA-Public Use
  Company Number: None

PATIENT
  Age: 66 Year
  Sex: Female
  Weight: 74.25 kg

DRUGS (12)
  1. TRAMADOL [Suspect]
     Active Substance: TRAMADOL
     Indication: Pain
     Dosage: OTHER QUANTITY : 2 TABLET(S);?FREQUENCY : TWICE A DAY;?
     Route: 048
     Dates: start: 20210501, end: 20220526
  2. TRAMADOL [Suspect]
     Active Substance: TRAMADOL
     Indication: Fibromyalgia
  3. TRAMADOL [Suspect]
     Active Substance: TRAMADOL
     Indication: Back pain
  4. Brimonidine (glaucoma) [Concomitant]
  5. dorzolamide-timolol (glaucoma) [Concomitant]
  6. pregabalin (fibromyalgia, pain) [Concomitant]
  7. tramadol (fibromyalgia, pain) [Concomitant]
  8. nortriptyline (migraines) [Concomitant]
  9. methotrexate (psoriasis) [Concomitant]
  10. estradiol/progesterone (HRT) [Concomitant]
  11. MULTI-VITAMIN [Concomitant]
     Active Substance: .ALPHA.-TOCOPHEROL ACETATE, DL-\ASCORBIC ACID\CYANOCOBALAMIN\FLUORIDE ION\FOLIC ACID\NIACIN\PYRIDOXI
  12. folic acid (because of the methotrexate) [Concomitant]

REACTIONS (5)
  - Product substitution issue [None]
  - Nausea [None]
  - Dizziness [None]
  - Constipation [None]
  - Therapeutic product effect decreased [None]

NARRATIVE: CASE EVENT DATE: 20220420
